FAERS Safety Report 6730663-7 (Version None)
Quarter: 2010Q2

REPORT INFORMATION
  Report Type: 
  Country: None (occurrence: None)
  Receive Date: 20100518
  Receipt Date: 20100429
  Transmission Date: 20101027
  Serious: Yes (Death)
  Sender: FDA-Public Use
  Company Number: US-GENENTECH-301583

PATIENT
  Age: 10 Year
  Sex: Male

DRUGS (17)
  1. RITUXIMAB [Suspect]
     Indication: PEMPHIGOID
     Dosage: 375 MG/M2, 1/WEEK
     Route: 065
     Dates: start: 19991111, end: 19991211
  2. MYCOPHENOLATE MOFETIL [Suspect]
     Indication: GRAFT VERSUS HOST DISEASE
     Dosage: UNK
     Route: 065
     Dates: start: 19991001
  3. MYCOPHENOLATE MOFETIL [Suspect]
     Dosage: 750 MG, BID
     Route: 065
     Dates: start: 19991101
  4. MYCOPHENOLATE MOFETIL [Suspect]
     Dosage: UNK
     Route: 065
     Dates: start: 20000301
  5. MYCOPHENOLATE MOFETIL [Suspect]
     Dosage: UNK
     Route: 065
     Dates: start: 20000401
  6. ZENAPAX [Suspect]
     Indication: PEMPHIGOID
     Dosage: UNK
     Route: 065
     Dates: start: 19991123
  7. ZENAPAX [Suspect]
     Dosage: UNK UNK, 1/WEEK
     Route: 065
     Dates: start: 19991201
  8. ZENAPAX [Suspect]
     Dosage: UNK
     Route: 065
     Dates: start: 20000101
  9. ZENAPAX [Suspect]
     Dosage: 1 MG/KG, 1/WEEK
     Route: 065
     Dates: start: 20000401
  10. ZENAPAX [Suspect]
     Dosage: UNK
     Route: 065
  11. SOLU-MEDROL [Suspect]
     Indication: PROPHYLAXIS AGAINST GRAFT VERSUS HOST DISEASE
     Dosage: 35 MG, Q12H
     Route: 065
     Dates: start: 19991001
  12. SOLU-MEDROL [Suspect]
     Dosage: 45 MG, Q12H
     Route: 065
  13. SOLU-MEDROL [Suspect]
     Dosage: 35 MG, Q12H
     Route: 065
     Dates: start: 20000101
  14. SOLU-MEDROL [Suspect]
     Dosage: UNK
     Route: 065
     Dates: start: 20000301
  15. SOLU-MEDROL [Suspect]
     Dosage: UNK
     Route: 065
     Dates: start: 20000401
  16. SOLU-MEDROL [Suspect]
     Dosage: 20 MG, QOD
     Route: 065
     Dates: start: 20000801
  17. SOLU-MEDROL [Suspect]
     Dosage: 5 MG, QOD
     Route: 065
     Dates: start: 20001201

REACTIONS (1)
  - BACTERIAL SEPSIS [None]
